FAERS Safety Report 4999288-8 (Version None)
Quarter: 2006Q2

REPORT INFORMATION
  Report Type: 
  Country: None (occurrence: None)
  Receive Date: 20060509
  Receipt Date: 20060428
  Transmission Date: 20061013
  Serious: Yes (Hospitalization, Other)
  Sender: FDA-Public Use
  Company Number: USA-2004-0013250

PATIENT
  Age: 63 Year
  Sex: Male

DRUGS (32)
  1. OXYCONTIN [Suspect]
     Indication: PAIN
     Dosage: SEE IMAGE
  2. OXYIR [Concomitant]
  3. NORVASC [Concomitant]
  4. AVAPRO [Concomitant]
  5. LASIX [Concomitant]
  6. FLOMAX (MORNIFLUMATE) [Concomitant]
  7. PULMICORT [Concomitant]
  8. NEXIUM [Concomitant]
  9. EFFEXOR [Concomitant]
  10. LORAZEPAM [Concomitant]
  11. PROVENTIL [Concomitant]
  12. COMBIVENT [Concomitant]
  13. ALBUTEROL [Concomitant]
  14. ATROVENT [Concomitant]
  15. AMBIEN [Concomitant]
  16. POTASSIUM CHLORIDE [Concomitant]
  17. NYSTATIN [Concomitant]
  18. PAXIL [Concomitant]
  19. PREDNISONE TAB [Concomitant]
  20. PROTONIX [Concomitant]
  21. SEREVENT [Concomitant]
  22. SINGULAIR ^DIECKMANN^ (MONTELUKAST SODIUM) [Concomitant]
  23. UNIPHYL [Concomitant]
  24. MYCELEX [Concomitant]
  25. GLUCOTROL [Concomitant]
  26. TRIAMTERENE [Concomitant]
  27. PREVACID [Concomitant]
  28. ELAVIL [Concomitant]
  29. ROXANOL [Concomitant]
  30. THEOCHRON [Concomitant]
  31. FLOVENT [Concomitant]
  32. METAGLIP [Concomitant]

REACTIONS (53)
  - ABDOMINAL DISCOMFORT [None]
  - ABDOMINAL DISTENSION [None]
  - ABDOMINAL PAIN UPPER [None]
  - ANAEMIA [None]
  - ANXIETY [None]
  - BENIGN PROSTATIC HYPERPLASIA [None]
  - BRONCHITIS [None]
  - CHEST DISCOMFORT [None]
  - CHRONIC OBSTRUCTIVE PULMONARY DISEASE [None]
  - CLOSTRIDIUM DIFFICILE COLITIS [None]
  - COR PULMONALE [None]
  - COUGH [None]
  - DECREASED APPETITE [None]
  - DEHYDRATION [None]
  - DELUSION [None]
  - DELUSIONAL DISORDER, UNSPECIFIED TYPE [None]
  - DEPRESSION [None]
  - DIARRHOEA [None]
  - DRUG DEPENDENCE [None]
  - DRUG TOLERANCE INCREASED [None]
  - DRUG WITHDRAWAL SYNDROME [None]
  - DYSPHONIA [None]
  - DYSPNOEA [None]
  - DYSPNOEA EXACERBATED [None]
  - DYSURIA [None]
  - EMPHYSEMA [None]
  - ERECTILE DYSFUNCTION [None]
  - FATIGUE [None]
  - FEELING JITTERY [None]
  - FLUID OVERLOAD [None]
  - FLUID RETENTION [None]
  - HYPONATRAEMIA [None]
  - HYPOTENSION [None]
  - INAPPROPRIATE SCHEDULE OF DRUG ADMINISTRATION [None]
  - NIGHT SWEATS [None]
  - NOCTURIA [None]
  - OBSESSIVE-COMPULSIVE DISORDER [None]
  - OEDEMA [None]
  - PAIN [None]
  - PARANOIA [None]
  - PHARMACEUTICAL PRODUCT COMPLAINT [None]
  - PNEUMONIA [None]
  - POLLAKIURIA [None]
  - RENAL FAILURE [None]
  - RESPIRATORY DISTRESS [None]
  - RHINITIS [None]
  - RHINORRHOEA [None]
  - SINUSITIS [None]
  - TACHYCARDIA [None]
  - THERAPY NON-RESPONDER [None]
  - URINARY RETENTION [None]
  - WEIGHT INCREASED [None]
  - WHEEZING [None]
